FAERS Safety Report 15966383 (Version 1)
Quarter: 2019Q1

REPORT INFORMATION
  Report Type: Spontaneous
  Country: US (occurrence: US)
  Receive Date: 20190214
  Receipt Date: 20190214
  Transmission Date: 20190418
  Serious: Yes (Other)
  Sender: FDA-Public Use
  Company Number: None

PATIENT
  Age: 39 Year
  Sex: Male

DRUGS (2)
  1. SUBVENITE [Suspect]
     Active Substance: LAMOTRIGINE
     Indication: BIPOLAR DISORDER
     Dosage: ?          QUANTITY:2 TABLET(S);OTHER FREQUENCY:1 AM, 1 PM;?
     Route: 048
     Dates: start: 20190131, end: 20190213
  2. LAMOTRIGINE. [Suspect]
     Active Substance: LAMOTRIGINE
     Indication: BIPOLAR DISORDER
     Dosage: ?          QUANTITY:2 TABLET(S);OTHER FREQUENCY:1 AM, 1 PM;?
     Route: 048
     Dates: start: 20181224, end: 20190131

REACTIONS (5)
  - Product substitution issue [None]
  - Mania [None]
  - Rash [None]
  - Suicidal ideation [None]
  - Depression [None]

NARRATIVE: CASE EVENT DATE: 20181224
